FAERS Safety Report 5583977-0 (Version None)
Quarter: 2008Q1

REPORT INFORMATION
  Report Type: 
  Country: None (occurrence: None)
  Receive Date: 20080103
  Receipt Date: 20080103
  Transmission Date: 20080703
  Serious: Yes (Death)
  Sender: FDA-Public Use
  Company Number: None

PATIENT
  Age: 15 Year
  Sex: Male
  Weight: 58.9676 kg

DRUGS (1)
  1. SINGULAIR [Suspect]
     Dates: start: 20070720, end: 20070805

REACTIONS (12)
  - AGITATION [None]
  - ANXIETY [None]
  - BODY TEMPERATURE INCREASED [None]
  - COMPLETED SUICIDE [None]
  - DEPRESSION [None]
  - FEELING ABNORMAL [None]
  - HYPERHIDROSIS [None]
  - INSOMNIA [None]
  - NERVOUSNESS [None]
  - PAIN IN EXTREMITY [None]
  - RESTLESSNESS [None]
  - SWELLING FACE [None]
